FAERS Safety Report 6151305-8 (Version None)
Quarter: 2009Q2

REPORT INFORMATION
  Report Type: 
  Country: None (occurrence: None)
  Receive Date: 20090410
  Receipt Date: 20090331
  Transmission Date: 20091009
  Serious: Yes (Hospitalization, Other)
  Sender: FDA-Public Use
  Company Number: PHHY2009US12531

PATIENT
  Age: 51 Year
  Sex: Female
  Weight: 66.7 kg

DRUGS (1)
  1. CLOZAPINE [Suspect]
     Dosage: 150 MG, BID

REACTIONS (9)
  - BLOOD PRESSURE DECREASED [None]
  - CHEST PAIN [None]
  - COAGULATION FACTOR VIII LEVEL INCREASED [None]
  - DYSPNOEA [None]
  - FIBRIN D DIMER INCREASED [None]
  - PCO2 DECREASED [None]
  - PO2 DECREASED [None]
  - PULMONARY EMBOLISM [None]
  - PULMONARY INFARCTION [None]
